FAERS Safety Report 12237263 (Version 2)
Quarter: 2016Q2

REPORT INFORMATION
  Report Type: Spontaneous
  Country: US (occurrence: US)
  Receive Date: 20160405
  Receipt Date: 20160531
  Transmission Date: 20160815
  Serious: Yes (Death, Other)
  Sender: FDA-Public Use
  Company Number: US-SA-2016SA062049

PATIENT
  Age: 30 Month
  Sex: Male

DRUGS (10)
  1. RITUXIMAB [Concomitant]
     Active Substance: RITUXIMAB
  2. PROPRANOLOL [Concomitant]
     Active Substance: PROPRANOLOL\PROPRANOLOL HYDROCHLORIDE
     Dosage: 2.2 MG Q6
  3. ENALAPRIL [Concomitant]
     Active Substance: ENALAPRIL
  4. LASIX [Concomitant]
     Active Substance: FUROSEMIDE
     Dosage: Q12
     Route: 042
  5. LASIX [Concomitant]
     Active Substance: FUROSEMIDE
     Dosage: Q12
     Route: 048
  6. MYOZYME [Suspect]
     Active Substance: ALGLUCOSIDASE ALFA
     Indication: GLYCOGEN STORAGE DISEASE TYPE II
     Route: 042
  7. ENALAPRIL [Concomitant]
     Active Substance: ENALAPRIL
     Route: 048
  8. LASIX [Concomitant]
     Active Substance: FUROSEMIDE
     Dosage: Q12
     Route: 048
  9. PROPRANOLOL [Concomitant]
     Active Substance: PROPRANOLOL\PROPRANOLOL HYDROCHLORIDE
     Dosage: 1.12 MG Q6
  10. METHOTREXATE [Concomitant]
     Active Substance: METHOTREXATE

REACTIONS (6)
  - Aspiration [Unknown]
  - Aspartate aminotransferase increased [Unknown]
  - Dysphagia [Unknown]
  - Swallow study abnormal [Unknown]
  - Alanine aminotransferase increased [Unknown]
  - Cardiovascular disorder [Fatal]
